FAERS Safety Report 5604122-9 (Version None)
Quarter: 2008Q1

REPORT INFORMATION
  Report Type: 
  Country: None (occurrence: None)
  Receive Date: 20080128
  Receipt Date: 20080121
  Transmission Date: 20080703
  Serious: Yes (Death, Other)
  Sender: FDA-Public Use
  Company Number: PHBS2008IT01138

PATIENT
  Sex: Female

DRUGS (2)
  1. AREDIA [Suspect]
     Dates: start: 20010101, end: 20040101
  2. ZOMETA [Suspect]
     Dates: start: 20010101, end: 20040101

REACTIONS (5)
  - CUSHING'S SYNDROME [None]
  - GENERAL PHYSICAL HEALTH DETERIORATION [None]
  - MASTICATION DISORDER [None]
  - OSTEONECROSIS [None]
  - SURGERY [None]
